FAERS Safety Report 9102606 (Version 1)
Quarter: 2013Q1

REPORT INFORMATION
  Report Type: Spontaneous
  Country: US (occurrence: US)
  Receive Date: 20130218
  Receipt Date: 20130218
  Transmission Date: 20140127
  Serious: No
  Sender: FDA-Public Use
  Company Number: US-BIOGENIDEC-2013BI013378

PATIENT
  Sex: Female

DRUGS (1)
  1. TYSABRI [Suspect]
     Indication: MULTIPLE SCLEROSIS
     Route: 042
     Dates: start: 20110503

REACTIONS (7)
  - Gait disturbance [Unknown]
  - Feeling cold [Unknown]
  - Hypoaesthesia [Unknown]
  - Pyrexia [Unknown]
  - Drug ineffective [Unknown]
  - Pneumonia [Unknown]
  - Multiple sclerosis relapse [Unknown]
